FAERS Safety Report 12779692 (Version 8)
Quarter: 2018Q3

REPORT INFORMATION
  Report Type: Spontaneous
  Country: US (occurrence: US)
  Receive Date: 20160926
  Receipt Date: 20180912
  Transmission Date: 20181010
  Serious: Yes (Other)
  Sender: FDA-Public Use
  Company Number: US-PFIZER INC-2016444848

PATIENT
  Age: 84 Year
  Sex: Female

DRUGS (15)
  1. LYRICA [Suspect]
     Active Substance: PREGABALIN
     Indication: PAIN
     Dosage: 100 MG, 1X/DAY
  2. LYRICA [Suspect]
     Active Substance: PREGABALIN
     Indication: DIABETIC NEUROPATHY
     Dosage: 100 MG, 2X/DAY
  3. SYNTHROID [Concomitant]
     Active Substance: LEVOTHYROXINE SODIUM
     Indication: THYROID DISORDER
     Dosage: 0.088 UG, UNK
  4. LYRICA [Suspect]
     Active Substance: PREGABALIN
     Dosage: UNK
  5. LYRICA [Suspect]
     Active Substance: PREGABALIN
     Dosage: 250 MG, 2X/DAY (IN THE MORNING AND AT NIGHT)
     Route: 048
  6. LIPITOR [Concomitant]
     Active Substance: ATORVASTATIN CALCIUM
     Indication: BLOOD PRESSURE ABNORMAL
     Dosage: UNK
  7. LYRICA [Suspect]
     Active Substance: PREGABALIN
     Indication: INTERVERTEBRAL DISC PROTRUSION
     Dosage: 100 MG, 3X/DAY
  8. JANUVIA [Concomitant]
     Active Substance: SITAGLIPTIN PHOSPHATE
     Indication: DIABETES MELLITUS
     Dosage: UNK
  9. LYRICA [Suspect]
     Active Substance: PREGABALIN
     Dosage: 600 MG, DAILY (TAKE TWO CAPSULES IN MORNING AND TWO AT NIGHT)
  10. PROCARDIA XL [Concomitant]
     Active Substance: NIFEDIPINE
     Dosage: 30 MG, UNK
  11. CELEBREX [Concomitant]
     Active Substance: CELECOXIB
     Dosage: 20 MG, UNK
  12. LYRICA [Suspect]
     Active Substance: PREGABALIN
     Dosage: UNK
     Dates: start: 2017
  13. VENTOLIN [Concomitant]
     Active Substance: ALBUTEROL SULFATE
     Indication: ASTHMA
     Dosage: UNK
  14. METANX [Concomitant]
     Active Substance: LEVOMEFOLATE CALCIUM\METHYLCOBALAMIN\PYRIDOXAL PHOSPHATE ANHYDROUS
     Dosage: UNK
  15. FLOVENT [Concomitant]
     Active Substance: FLUTICASONE PROPIONATE
     Indication: ASTHMA
     Dosage: UNK UNK, 1X/DAY (EVERY NIGHT)

REACTIONS (4)
  - Salivary gland cancer [Unknown]
  - Nuclear magnetic resonance imaging abnormal [Recovered/Resolved]
  - Drug ineffective [Recovered/Resolved]
  - Neck pain [Unknown]
